FAERS Safety Report 21762677 (Version 2)
Quarter: 2022Q4

REPORT INFORMATION
  Report Type: Spontaneous
  Country: PT (occurrence: PT)
  Receive Date: 20221221
  Receipt Date: 20221230
  Transmission Date: 20230112
  Serious: Yes (Other)
  Sender: FDA-Public Use
  Company Number: PT-GLAXOSMITHKLINE-PT2022EME187876

PATIENT

DRUGS (1)
  1. ACYCLOVIR [Suspect]
     Active Substance: ACYCLOVIR
     Indication: Herpes ophthalmic
     Dosage: UNK

REACTIONS (4)
  - Acute generalised exanthematous pustulosis [Unknown]
  - Subcorneal pustular dermatosis [Unknown]
  - Eczema [Unknown]
  - Lymphocytic infiltration [Unknown]
